FAERS Safety Report 6242275-2 (Version None)
Quarter: 2009Q2

REPORT INFORMATION
  Report Type: 
  Country: None (occurrence: None)
  Receive Date: 20090622
  Receipt Date: 20090622
  Transmission Date: 20091009
  Serious: Yes (Other)
  Sender: FDA-Public Use
  Company Number: None

PATIENT
  Sex: Male
  Weight: 62.1428 kg

DRUGS (2)
  1. ZICAM COLD REMEDY NASAL GEL [Suspect]
     Indication: INFLUENZA
     Dosage: AS INDICATED IN LABEL
     Dates: start: 20090506, end: 20090508
  2. ZICAM COLD REMEDY NASAL GEL [Suspect]
     Indication: NASAL CONGESTION
     Dosage: AS INDICATED IN LABEL
     Dates: start: 20090506, end: 20090508

REACTIONS (1)
  - HYPOSMIA [None]
